FAERS Safety Report 7525657-8 (Version None)
Quarter: 2011Q2

REPORT INFORMATION
  Report Type: 
  Country: None (occurrence: None)
  Receive Date: 20110606
  Receipt Date: 20110524
  Transmission Date: 20111010
  Serious: Yes (Other)
  Sender: FDA-Public Use
  Company Number: PHHY2011US22449

PATIENT
  Sex: Male
  Weight: 140.59 kg

DRUGS (12)
  1. METFORMIN HCL [Concomitant]
     Dosage: UNK
  2. POTASSIUM CHLORIDE [Concomitant]
     Dosage: UNK
  3. LISINOPRIL [Concomitant]
  4. EXTAVIA [Suspect]
     Indication: MULTIPLE SCLEROSIS
     Dosage: 0.062 MG, QOD
     Route: 058
     Dates: start: 20110303
  5. GLUCOPHAGE [Concomitant]
     Dosage: UNK
  6. TRAZODONE HCL [Concomitant]
  7. ATIVAN [Concomitant]
  8. ZESTRIL [Concomitant]
     Dosage: UNK
  9. TRAMADOL HCL [Concomitant]
  10. LYRICA [Concomitant]
  11. ULTRAM [Concomitant]
  12. MOBIC [Concomitant]

REACTIONS (19)
  - BLOOD THYROID STIMULATING HORMONE INCREASED [None]
  - DEPRESSION [None]
  - INFLUENZA LIKE ILLNESS [None]
  - STRESS [None]
  - ALANINE AMINOTRANSFERASE INCREASED [None]
  - ASPARTATE AMINOTRANSFERASE INCREASED [None]
  - ASTHENIA [None]
  - CHILLS [None]
  - PAIN [None]
  - EAR INFECTION [None]
  - HEADACHE [None]
  - PYREXIA [None]
  - FEELING COLD [None]
  - FEELING ABNORMAL [None]
  - JOINT SPRAIN [None]
  - MUSCLE SPASMS [None]
  - GASTROOESOPHAGEAL REFLUX DISEASE [None]
  - ABDOMINAL DISCOMFORT [None]
  - FATIGUE [None]
